FAERS Safety Report 6468858-2 (Version None)
Quarter: 2009Q4

REPORT INFORMATION
  Report Type: 
  Country: None (occurrence: None)
  Receive Date: 20091203
  Receipt Date: 20080206
  Transmission Date: 20100525
  Serious: Yes (Life-Threatening, Hospitalization)
  Sender: FDA-Public Use
  Company Number: IT-ELI_LILLY_AND_COMPANY-EWC041241982

PATIENT
  Sex: Female
  Weight: 69 kg

DRUGS (5)
  1. FORTEO [Suspect]
     Indication: OSTEOPOROSIS
     Dosage: 20 UG, DAILY (1/D)
     Route: 058
     Dates: start: 20041205, end: 20041217
  2. MONOKET [Concomitant]
     Indication: HYPERTENSION
     Dosage: 1 D/F, UNKNOWN
     Route: 048
     Dates: start: 20010101
  3. PRETERAX [Concomitant]
     Indication: HYPERTENSION
     Dosage: 1 D/F, UNKNOWN
     Route: 048
     Dates: start: 20010101
  4. TOTALIP [Concomitant]
     Indication: DYSLIPIDAEMIA
     Dosage: 1 D/F, UNKNOWN
     Route: 048
     Dates: start: 20010101
  5. LOPRESSOR [Concomitant]
     Indication: HYPERTENSION
     Dosage: 1 D/F, UNKNOWN
     Route: 048
     Dates: start: 20010101

REACTIONS (3)
  - ATRIAL FIBRILLATION [None]
  - EXTRASYSTOLES [None]
  - PALPITATIONS [None]
